FAERS Safety Report 8847145 (Version 1)
Quarter: 2012Q4

REPORT INFORMATION
  Report Type: Spontaneous
  Country: DE (occurrence: None)
  Receive Date: 20121016
  Receipt Date: 20121016
  Transmission Date: 20130627
  Serious: Yes (Hospitalization, Disabling, Congenital Anomaly, Other)
  Sender: FDA-Public Use
  Company Number: GER/GER/12/0026172

PATIENT
  Age: 28 Day
  Sex: Male
  Weight: 3.78 kg

DRUGS (2)
  1. CITALOPRAM (CITALOPRAM) [Suspect]
     Indication: DRUG USE FOR UNKNOWN INDICATION
     Dosage: Probably taken throughout pregnancy, but exact information not given
     Route: 064
  2. THYROXINE (LEVOTHYROXINE SODIUM) [Concomitant]

REACTIONS (7)
  - Congenital anomaly [None]
  - Ventricular septal defect [None]
  - Cleft lip and palate [None]
  - Atrial septal defect [None]
  - Hypoglycaemia neonatal [None]
  - Neonatal respiratory distress syndrome [None]
  - Maternal drugs affecting foetus [None]
